FAERS Safety Report 10045578 (Version 1)
Quarter: 2014Q1

REPORT INFORMATION
  Report Type: Spontaneous
  Country: US (occurrence: US)
  Receive Date: 20140328
  Receipt Date: 20140328
  Transmission Date: 20141002
  Serious: Yes (Other)
  Sender: FDA-Public Use
  Company Number: CHPA2014US004482

PATIENT
  Age: 73 Year
  Sex: Female

DRUGS (1)
  1. LAMISIL AT CREAM UNKNOWN AF OR JI [Suspect]

REACTIONS (2)
  - Drug hypersensitivity [Unknown]
  - Rash generalised [Unknown]
